FAERS Safety Report 20548237 (Version 1)
Quarter: 2022Q1

REPORT INFORMATION
  Report Type: Spontaneous
  Country: US (occurrence: US)
  Receive Date: 20220303
  Receipt Date: 20220303
  Transmission Date: 20220423
  Serious: Yes (Other)
  Sender: FDA-Public Use
  Company Number: US-PERRIGO-22US003121

PATIENT
  Age: 60 Year
  Sex: Female

DRUGS (1)
  1. EVAMIST [Suspect]
     Active Substance: ESTRADIOL
     Indication: Menopause
     Dosage: 1.53 MG, QD
     Route: 062
     Dates: end: 202202

REACTIONS (2)
  - Suicidal ideation [Recovered/Resolved]
  - Therapy interrupted [Not Recovered/Not Resolved]

NARRATIVE: CASE EVENT DATE: 20220201
